FAERS Safety Report 15307924 (Version 1)
Quarter: 2018Q3

REPORT INFORMATION
  Report Type: Spontaneous
  Country: US (occurrence: US)
  Receive Date: 20180822
  Receipt Date: 20180822
  Transmission Date: 20181010
  Serious: No
  Sender: FDA-Public Use
  Company Number: US-BECTON DICKINSON-2017BDN00313

PATIENT
  Sex: Male

DRUGS (1)
  1. CHLORAPREP ONE?STEP FREPP [Suspect]
     Active Substance: CHLORHEXIDINE GLUCONATE\ISOPROPYL ALCOHOL
     Indication: INFECTION PROPHYLAXIS
     Dosage: 1 DOSAGE UNITS, ONCE
     Route: 061

REACTIONS (3)
  - Wound [Unknown]
  - Scratch [Unknown]
  - Product package associated injury [Unknown]
